FAERS Safety Report 5350410-3 (Version None)
Quarter: 2007Q2

REPORT INFORMATION
  Report Type: 
  Country: None (occurrence: None)
  Receive Date: 20070605
  Receipt Date: 20070605
  Transmission Date: 20071010
  Serious: No
  Sender: FDA-Public Use
  Company Number: None

PATIENT
  Sex: Female
  Weight: 100 kg

DRUGS (12)
  1. ROZEREM [Suspect]
     Indication: INSOMNIA
     Dosage: 8 MG ONCE PO
     Route: 048
     Dates: start: 20070409, end: 20070410
  2. RISPERIDONE [Concomitant]
  3. CLONAZEPAM [Concomitant]
  4. DEPAKOTE ER [Concomitant]
  5. DEXAMETHASONE 0.5MG TAB [Concomitant]
  6. LOVENOX [Concomitant]
  7. PROTONIX [Concomitant]
  8. ALLEGRA [Concomitant]
  9. ACETAZOLAMIDE [Concomitant]
  10. ERGOCALCIFEROL [Concomitant]
  11. CALCIUM CHLORIDE [Concomitant]
  12. SLIDING SCALE INSULIN [Concomitant]

REACTIONS (1)
  - SEDATION [None]
